FAERS Safety Report 10252422 (Version 1)
Quarter: 2014Q2

REPORT INFORMATION
  Report Type: Spontaneous
  Country: JP (occurrence: JP)
  Receive Date: 20140623
  Receipt Date: 20140623
  Transmission Date: 20141212
  Serious: Yes (Hospitalization)
  Sender: FDA-Public Use
  Company Number: PHHY2014JP076941

PATIENT
  Age: 72 Year
  Sex: Female

DRUGS (4)
  1. RIVASTIGMIN [Suspect]
     Indication: DEMENTIA ALZHEIMER^S TYPE
     Dosage: 9 MG, DAILY (4.6 MG PER 24 HOURS)
     Route: 062
     Dates: end: 20140402
  2. ASPIRIN [Concomitant]
     Dosage: UNK UKN, UNK
     Dates: end: 20140402
  3. PLAVIX [Concomitant]
     Dosage: UNK UKN, UNK
     Dates: end: 20140402
  4. CRESTOR [Concomitant]
     Dosage: UNK UKN, UNK
     Dates: end: 20140402

REACTIONS (3)
  - Contusion [Not Recovered/Not Resolved]
  - Fall [Unknown]
  - Wrong technique in drug usage process [Unknown]
